FAERS Safety Report 5357449-2 (Version None)
Quarter: 2007Q2

REPORT INFORMATION
  Report Type: 
  Country: None (occurrence: None)
  Receive Date: 20070530
  Receipt Date: 20070123
  Transmission Date: 20071010
  Serious: Yes (Hospitalization)
  Sender: FDA-Public Use
  Company Number: US200607000819

PATIENT
  Age: 51 Year
  Sex: Female
  Weight: 93.4 kg

DRUGS (4)
  1. ZYPREXA [Suspect]
     Dosage: 10 MG
     Dates: start: 20020101, end: 20061230
  2. SEROQUEL [Concomitant]
  3. RISPERIDONE [Concomitant]
  4. DEPAKOTE [Concomitant]

REACTIONS (2)
  - DIABETES MELLITUS [None]
  - HYPERGLYCAEMIA [None]
